FAERS Safety Report 10565498 (Version 1)
Quarter: 2014Q4

REPORT INFORMATION
  Report Type: Spontaneous
  Country: US (occurrence: None)
  Receive Date: 20141104
  Receipt Date: 20141104
  Transmission Date: 20150529
  Serious: Yes (Other)
  Sender: FDA-Public Use
  Company Number: None

PATIENT
  Age: 31 Year
  Sex: Female
  Weight: 61.24 kg

DRUGS (1)
  1. HUMALOG [Suspect]
     Active Substance: INSULIN LISPRO
     Indication: TYPE 1 DIABETES MELLITUS
     Dosage: VARIES ON BLOOD SUGAR/DIET?AS NEEDED?GIVEN INTO/UNDER THE SKIN?THERAPY?YEARS

REACTIONS (2)
  - Device malfunction [None]
  - Incorrect dose administered [None]

NARRATIVE: CASE EVENT DATE: 20141101
